FAERS Safety Report 6452850-8 (Version None)
Quarter: 2009Q4

REPORT INFORMATION
  Report Type: 
  Country: None (occurrence: None)
  Receive Date: 20091124
  Receipt Date: 20090403
  Transmission Date: 20100525
  Serious: No
  Sender: FDA-Public Use
  Company Number: US-ABBOTT-09P-163-0566648-00

PATIENT
  Age: 40 Year
  Sex: Male

DRUGS (2)
  1. TRICOR [Suspect]
     Indication: DRUG USE FOR UNKNOWN INDICATION
  2. TRILIPIX [Suspect]
     Indication: DRUG USE FOR UNKNOWN INDICATION

REACTIONS (1)
  - BLOOD CREATININE INCREASED [None]
